FAERS Safety Report 6768617-7 (Version None)
Quarter: 2010Q2

REPORT INFORMATION
  Report Type: 
  Country: None (occurrence: None)
  Receive Date: 20100614
  Receipt Date: 20100607
  Transmission Date: 20101027
  Serious: Yes (Hospitalization, Other)
  Sender: FDA-Public Use
  Company Number: US-ROCHE-698874

PATIENT
  Age: 37 Year
  Sex: Female
  Weight: 81.6 kg

DRUGS (1)
  1. ACCUTANE [Suspect]
     Dosage: FREQUENCY: 2K/DAY
     Route: 048
     Dates: start: 19940101, end: 19980101

REACTIONS (2)
  - IRRITABLE BOWEL SYNDROME [None]
  - RECTAL PROLAPSE [None]
